FAERS Safety Report 8785383 (Version 4)
Quarter: 2013Q3

REPORT INFORMATION
  Report Type: Report from Study
  Country: JP (occurrence: JP)
  Receive Date: 20120914
  Receipt Date: 20130724
  Transmission Date: 20140515
  Serious: Yes (Hospitalization, Other)
  Sender: FDA-Public Use
  Company Number: JP-VERTEX PHARMACEUTICAL INC.-2012-020888

PATIENT
  Age: 62 Year
  Sex: Female

DRUGS (10)
  1. VX-950 (TELAPREVIR) [Suspect]
     Indication: CHRONIC HEPATITIS C
     Dosage: 2250 MG, QD
     Route: 048
     Dates: start: 20120703, end: 20120904
  2. VX-950 (TELAPREVIR) [Suspect]
     Indication: CHRONIC HEPATITIS C
  3. REBETOL [Suspect]
     Indication: CHRONIC HEPATITIS C
     Dosage: 600 MG, QD
     Route: 048
     Dates: start: 20120703, end: 20120717
  4. REBETOL [Suspect]
     Dosage: 200 MG, QD
     Route: 048
     Dates: start: 20120717, end: 20120904
  5. PEGINTRON [Suspect]
     Indication: CHRONIC HEPATITIS C
     Dosage: 1.5 ?G/KG, QW
     Route: 058
     Dates: start: 20120703, end: 20120904
  6. URSO [Concomitant]
     Dosage: 600 MG, QD
     Route: 048
     Dates: end: 20120807
  7. AMLODIN [Concomitant]
     Dosage: 2.5 MG, QD
     Route: 048
  8. AMLODIN [Concomitant]
     Dosage: 5 MG, QD
     Route: 048
  9. DENOSALIN 1 [Concomitant]
     Dosage: 1000 ML, QD
     Route: 051
     Dates: start: 20120703, end: 20120807
  10. NEXIUM [Concomitant]
     Dosage: 10 MG, QD
     Route: 048
     Dates: start: 20120712

REACTIONS (3)
  - Dehydration [Recovered/Resolved]
  - Decreased appetite [Recovered/Resolved]
  - Eczema asteatotic [Recovered/Resolved]
